FAERS Safety Report 6400058-4 (Version None)
Quarter: 2009Q4

REPORT INFORMATION
  Report Type: 
  Country: None (occurrence: None)
  Receive Date: 20091014
  Receipt Date: 20091012
  Transmission Date: 20100525
  Serious: Yes (Other)
  Sender: FDA-Public Use
  Company Number: A0811389A

PATIENT
  Age: 52 Year
  Sex: Male

DRUGS (2)
  1. WELLBUTRIN [Suspect]
     Indication: DEPRESSION
     Route: 048
     Dates: end: 20091009
  2. NO CONCURRENT MEDICATION [Concomitant]

REACTIONS (8)
  - DISORIENTATION [None]
  - FATIGUE [None]
  - FEELING ABNORMAL [None]
  - IMMOBILE [None]
  - MONOPLEGIA [None]
  - MOTOR DYSFUNCTION [None]
  - OVERDOSE [None]
  - SUICIDAL IDEATION [None]
